FAERS Safety Report 6924482-6 (Version None)
Quarter: 2010Q3

REPORT INFORMATION
  Report Type: 
  Country: None (occurrence: None)
  Receive Date: 20100813
  Receipt Date: 20100805
  Transmission Date: 20110219
  Serious: Yes (Hospitalization)
  Sender: FDA-Public Use
  Company Number: US-AMGEN-QUU423277

PATIENT
  Sex: Female
  Weight: 78.1 kg

DRUGS (4)
  1. ENBREL [Suspect]
     Indication: PSORIATIC ARTHROPATHY
     Route: 058
     Dates: start: 20080909, end: 20090625
  2. METHOTREXATE [Concomitant]
     Dates: start: 20060215
  3. PREDNISONE [Concomitant]
     Dates: start: 19890816
  4. MOBIC [Concomitant]
     Dates: start: 20020327

REACTIONS (5)
  - GRANULOMA SKIN [None]
  - LYMPHADENOPATHY [None]
  - PNEUMOTHORAX [None]
  - SARCOIDOSIS [None]
  - SKIN NODULE [None]
